FAERS Safety Report 11813642 (Version 1)
Quarter: 2015Q4

REPORT INFORMATION
  Report Type: Spontaneous
  Country: US (occurrence: None)
  Receive Date: 20151208
  Receipt Date: 20151208
  Transmission Date: 20160305
  Serious: Yes (Death)
  Sender: FDA-Public Use
  Company Number: None

PATIENT
  Age: 46 Year
  Sex: Female
  Weight: 43.55 kg

DRUGS (2)
  1. SEROQUEL [Concomitant]
     Active Substance: QUETIAPINE FUMARATE
  2. REMERON [Suspect]
     Active Substance: MIRTAZAPINE
     Indication: ANXIETY
     Route: 048
     Dates: start: 20130801, end: 20141014

REACTIONS (6)
  - Drug withdrawal syndrome [None]
  - Suicidal ideation [None]
  - Dementia [None]
  - Feeling abnormal [None]
  - Insomnia [None]
  - Depression [None]

NARRATIVE: CASE EVENT DATE: 20151014
